FAERS Safety Report 6099095-1 (Version None)
Quarter: 2009Q1

REPORT INFORMATION
  Report Type: 
  Country: None (occurrence: None)
  Receive Date: 20090302
  Receipt Date: 20081112
  Transmission Date: 20090719
  Serious: Yes (Other)
  Sender: FDA-Public Use
  Company Number: US-ROXANE LABORATORIES, INC.-2008-RO-00219RO

PATIENT
  Age: 70 Year
  Sex: Male

DRUGS (12)
  1. PREDNISONE [Suspect]
     Indication: IMMUNOSUPPRESSANT DRUG THERAPY
     Dosage: 5MG
     Route: 048
  2. MYCOPHENOLATE MOFETIL [Suspect]
     Indication: IMMUNOSUPPRESSANT DRUG THERAPY
     Dosage: 500MG
     Route: 048
  3. TACROLIMUS [Suspect]
     Indication: IMMUNOSUPPRESSANT DRUG THERAPY
     Dosage: .5MG
     Route: 048
  4. LINEZOLID [Concomitant]
     Indication: STAPHYLOCOCCAL INFECTION
     Route: 048
  5. RITUXIMAB [Concomitant]
     Indication: B-CELL LYMPHOMA STAGE IV
  6. DEXAMETHASONE [Concomitant]
     Indication: SKIN NODULE
  7. DEXAMETHASONE [Concomitant]
     Indication: SKIN LESION
  8. CYCLOPHOSPHAMIDE [Concomitant]
     Indication: SKIN NODULE
  9. CYCLOPHOSPHAMIDE [Concomitant]
     Indication: SKIN LESION
  10. VINCRISTINE [Concomitant]
     Indication: SKIN NODULE
  11. VINCRISTINE [Concomitant]
     Indication: SKIN LESION
  12. ANTICOAGULANTS [Concomitant]
     Indication: ATRIAL FIBRILLATION

REACTIONS (3)
  - DIFFUSE LARGE B-CELL LYMPHOMA [None]
  - EPSTEIN-BARR VIRUS ASSOCIATED LYMPHOPROLIFERATIVE DISORDER [None]
  - STAPHYLOCOCCAL INFECTION [None]
